FAERS Safety Report 7964909-4 (Version None)
Quarter: 2011Q4

REPORT INFORMATION
  Report Type: 
  Country: None (occurrence: None)
  Receive Date: 20111208
  Receipt Date: 20111201
  Transmission Date: 20120403
  Serious: Yes (Life-Threatening, Hospitalization, Disabling, Other)
  Sender: FDA-Public Use
  Company Number: CZ-ROCHE-1018265

PATIENT
  Sex: Female
  Weight: 53 kg

DRUGS (2)
  1. FOSCARNET SODIUM [Suspect]
     Indication: CYTOMEGALOVIRUS COLITIS
     Route: 042
  2. GANCICLOVIR SODIUM [Suspect]
     Indication: CYTOMEGALOVIRUS COLITIS
     Dosage: DRUG REPORTED AS CYMEVENE 250 MG
     Route: 065

REACTIONS (1)
  - PATHOGEN RESISTANCE [None]
